FAERS Safety Report 8478788-2 (Version None)
Quarter: 2012Q2

REPORT INFORMATION
  Report Type: 
  Country: None (occurrence: None)
  Receive Date: 20120629
  Receipt Date: 20120620
  Transmission Date: 20120825
  Serious: Yes (Hospitalization)
  Sender: FDA-Public Use
  Company Number: JP-ROCHE-1079689

PATIENT
  Sex: Male
  Weight: 69 kg

DRUGS (17)
  1. PURSENNID [Concomitant]
     Indication: CONSTIPATION
     Route: 048
  2. AMARYL [Concomitant]
     Indication: DIABETES MELLITUS
     Route: 048
  3. XELODA [Suspect]
     Indication: COLON CANCER METASTATIC
     Dosage: DOSAGE IS UNCERTAIN.
     Route: 048
     Dates: start: 20120409, end: 20120422
  4. AMLODIPINE [Concomitant]
     Indication: HYPERTENSION
     Route: 048
  5. LOSARTAN POTASSIUM [Concomitant]
     Indication: HYPERTENSION
     Route: 048
  6. TAMSULOSIN HCL [Concomitant]
     Indication: BENIGN PROSTATIC HYPERPLASIA
     Route: 048
  7. WARFARIN SODIUM [Interacting]
     Indication: ATRIAL FIBRILLATION
     Route: 048
  8. LOXOPROFEN [Concomitant]
     Indication: ANALGESIC THERAPY
     Route: 048
     Dates: start: 20120310, end: 20120316
  9. LANIRAPID [Concomitant]
     Indication: ATRIAL FIBRILLATION
     Route: 048
  10. OXALIPLATIN [Concomitant]
     Indication: COLON CANCER METASTATIC
     Dosage: DOSAGE IS UNCERTAIN.
     Route: 041
     Dates: start: 20120409, end: 20120409
  11. OXALIPLATIN [Concomitant]
     Dosage: DOSAGE IS UNCERTAIN.
     Route: 041
     Dates: start: 20120528, end: 20120528
  12. FERROUS FUMARATE [Concomitant]
     Indication: ANAEMIA
     Route: 048
  13. DIART [Concomitant]
     Indication: HYPERTENSION
     Route: 048
  14. OXALIPLATIN [Concomitant]
     Dosage: DOSAGE IS UNCERTAIN.
     Route: 041
     Dates: start: 20120507, end: 20120507
  15. JANUVIA [Concomitant]
     Indication: DIABETES MELLITUS
     Route: 048
  16. XELODA [Interacting]
     Dosage: IT IS ADMINISTER/ONE WEEKLY HOLIDAY MEDICINE FOR TWO WEEKS.
     Route: 048
     Dates: start: 20120507, end: 20120520
  17. XELODA [Interacting]
     Dosage: IT IS ADMINISTER/ONE WEEKLY HOLIDAY MEDICINE FOR TWO WEEKS.
     Route: 048
     Dates: start: 20120528, end: 20120610

REACTIONS (8)
  - INTERNATIONAL NORMALISED RATIO INCREASED [None]
  - DECREASED APPETITE [None]
  - NAUSEA [None]
  - NEUROPATHY PERIPHERAL [None]
  - PYREXIA [None]
  - PALMAR-PLANTAR ERYTHRODYSAESTHESIA SYNDROME [None]
  - DRUG INTERACTION [None]
  - COUGH [None]
